FAERS Safety Report 5853127-1 (Version None)
Quarter: 2008Q3

REPORT INFORMATION
  Report Type: 
  Country: None (occurrence: None)
  Receive Date: 20080818
  Receipt Date: 20080610
  Transmission Date: 20090109
  Serious: No
  Sender: FDA-Public Use
  Company Number: WAES 0806USA02014

PATIENT
  Age: 40 Year
  Sex: Female

DRUGS (4)
  1. JANUVIA [Suspect]
     Indication: DIABETES MELLITUS
     Dosage: PO
     Route: 048
     Dates: start: 20080601
  2. AVANDARYL [Concomitant]
  3. GLUMET [Concomitant]
  4. LANTUS [Concomitant]

REACTIONS (1)
  - URTICARIA [None]
